FAERS Safety Report 8164298-9 (Version None)
Quarter: 2012Q1

REPORT INFORMATION
  Report Type: 
  Country: None (occurrence: None)
  Receive Date: 20120224
  Receipt Date: 20110425
  Transmission Date: 20120608
  Serious: No
  Sender: FDA-Public Use
  Company Number: US-MYLANLABS-2011S1005471

PATIENT
  Age: 75 Year
  Sex: Male

DRUGS (6)
  1. TOPROL-XL [Suspect]
     Indication: CHEST PAIN
     Dates: start: 20050101, end: 20070101
  2. TOPROL-XL [Suspect]
     Indication: BLOOD PRESSURE INCREASED
     Dates: start: 20050101, end: 20070101
  3. ATENOLOL [Suspect]
     Indication: BLOOD PRESSURE INCREASED
     Dates: start: 20070101, end: 20070101
  4. PROPRANOLOL [Suspect]
     Indication: BLOOD PRESSURE INCREASED
     Dates: start: 20070207, end: 20070201
  5. PROPRANOLOL [Suspect]
     Indication: CHEST PAIN
     Dates: start: 20070207, end: 20070201
  6. ATENOLOL [Suspect]
     Indication: CHEST PAIN
     Dates: start: 20070101, end: 20070101

REACTIONS (2)
  - RASH PRURITIC [None]
  - DRUG HYPERSENSITIVITY [None]
